FAERS Safety Report 20193357 (Version 6)
Quarter: 2024Q3

REPORT INFORMATION
  Report Type: Report from Study
  Country: CO (occurrence: CO)
  Receive Date: 20211216
  Receipt Date: 20240812
  Transmission Date: 20241017
  Serious: Yes (Hospitalization)
  Sender: NOVARTIS
  Company Number: CO-NOVARTISPH-NVSC2021CO244047

PATIENT
  Sex: Female
  Weight: 56 kg

DRUGS (6)
  1. KISQALI [Suspect]
     Active Substance: RIBOCICLIB
     Indication: Breast cancer metastatic
     Dosage: 600 MG, QD
     Route: 048
  2. KISQALI [Suspect]
     Active Substance: RIBOCICLIB
     Dosage: 200 MG, QD
     Route: 048
     Dates: start: 20201112
  3. FEMARA [Suspect]
     Active Substance: LETROZOLE
     Indication: Breast cancer
     Dosage: 2.5 MG, QD
     Route: 048
  4. CALCIUM [Concomitant]
     Active Substance: CALCIUM
     Indication: Product used for unknown indication
     Dosage: UNK
     Route: 065
  5. FULVESTRANT [Concomitant]
     Active Substance: FULVESTRANT
     Indication: Product used for unknown indication
     Dosage: 200 MG (12 CYCLES)
     Route: 065
  6. DENOSUMAB [Concomitant]
     Active Substance: DENOSUMAB
     Indication: Product used for unknown indication
     Dosage: UNK
     Route: 065

REACTIONS (15)
  - Gait disturbance [Recovering/Resolving]
  - Incoherent [Recovering/Resolving]
  - Skin disorder [Recovering/Resolving]
  - Amnesia [Recovering/Resolving]
  - Cerebral thrombosis [Recovering/Resolving]
  - Asthenia [Recovering/Resolving]
  - Somnolence [Recovering/Resolving]
  - Urinary tract infection [Recovering/Resolving]
  - Incontinence [Unknown]
  - Condition aggravated [Unknown]
  - Skin discolouration [Not Recovered/Not Resolved]
  - Feeding disorder [Unknown]
  - Vomiting [Not Recovered/Not Resolved]
  - Diarrhoea [Not Recovered/Not Resolved]
  - Blood creatinine increased [Unknown]
